FAERS Safety Report 6162618-8 (Version None)
Quarter: 2009Q2

REPORT INFORMATION
  Report Type: 
  Country: None (occurrence: None)
  Receive Date: 20090421
  Receipt Date: 20050202
  Transmission Date: 20091009
  Serious: No
  Sender: FDA-Public Use
  Company Number: US-SOLVAY-00205000342

PATIENT
  Sex: Female

DRUGS (2)
  1. AMOXICILLIN [Concomitant]
     Indication: INFECTION
     Dosage: DAILY DOSE:  UNKNOWN
     Route: 048
  2. ANDROGEL [Suspect]
     Indication: ILL-DEFINED DISORDER
     Dosage: DAILY DOSE: 15 GRAM(S)
     Route: 062
     Dates: start: 20000101, end: 20050101

REACTIONS (6)
  - BLOOD TESTOSTERONE INCREASED [None]
  - ENLARGED CLITORIS [None]
  - HAIR GROWTH ABNORMAL [None]
  - HYPERTRICHOSIS [None]
  - MUSCLE DISORDER [None]
  - PRECOCIOUS PUBERTY [None]
